FAERS Safety Report 8917656 (Version 2)
Quarter: 2013Q2

REPORT INFORMATION
  Report Type: Spontaneous
  Country: IL (occurrence: IL)
  Receive Date: 20121120
  Receipt Date: 20130507
  Transmission Date: 20140414
  Serious: Yes (Hospitalization)
  Sender: FDA-Public Use
  Company Number: IL-JNJFOC-20121106060

PATIENT
  Age: 19 Year
  Sex: Female
  Weight: 50 kg

DRUGS (1)
  1. REMICADE [Suspect]
     Indication: COLITIS ULCERATIVE
     Dosage: THE PATIENT HAD RECEIVED A TOTAL OF FOUR INFUSIONS.
     Route: 042
     Dates: start: 20120610, end: 20121028

REACTIONS (1)
  - Herpes zoster [Recovered/Resolved]
